FAERS Safety Report 6132677-7 (Version None)
Quarter: 2009Q1

REPORT INFORMATION
  Report Type: 
  Country: None (occurrence: None)
  Receive Date: 20090324
  Receipt Date: 20090313
  Transmission Date: 20090719
  Serious: Yes (Other)
  Sender: FDA-Public Use
  Company Number: 2009AP001063

PATIENT
  Age: 72 Year
  Sex: Female

DRUGS (3)
  1. CALCITONIN SALMON [Suspect]
     Indication: BONE DISORDER
     Dosage: 200 IU;QD;NAS
     Route: 045
     Dates: start: 20090312, end: 20090312
  2. NIFEDIPINE [Concomitant]
  3. ATENOLOL [Concomitant]

REACTIONS (2)
  - OROPHARYNGEAL PAIN [None]
  - THROAT TIGHTNESS [None]
